FAERS Safety Report 5322295-2 (Version None)
Quarter: 2007Q2

REPORT INFORMATION
  Report Type: 
  Country: None (occurrence: None)
  Receive Date: 20070511
  Receipt Date: 20070507
  Transmission Date: 20071010
  Serious: Yes (Other)
  Sender: FDA-Public Use
  Company Number: B0467431A

PATIENT
  Age: 38 Year
  Sex: Female
  Weight: 72 kg

DRUGS (2)
  1. AVANDAMET [Suspect]
     Indication: DRUG USE FOR UNKNOWN INDICATION
  2. DIABEX [Concomitant]
     Route: 065

REACTIONS (4)
  - CHEST DISCOMFORT [None]
  - DYSPNOEA [None]
  - RASH [None]
  - THROAT TIGHTNESS [None]
